FAERS Safety Report 10470566 (Version 1)
Quarter: 2014Q3

REPORT INFORMATION
  Report Type: Report from Study
  Country: IN (occurrence: IN)
  Receive Date: 20140923
  Receipt Date: 20140923
  Transmission Date: 20150326
  Serious: Yes (Hospitalization)
  Sender: FDA-Public Use
  Company Number: IN-PFIZER INC-2014260215

PATIENT
  Age: 58 Year
  Sex: Male
  Weight: 70 kg

DRUGS (9)
  1. HEXIDINE [Concomitant]
     Indication: DENTAL DISORDER PROPHYLAXIS
     Dosage: UNK
     Route: 048
     Dates: start: 20140807, end: 20140910
  2. SUNITINIB MALATE [Suspect]
     Active Substance: SUNITINIB MALATE
     Dosage: 25 MG, CONTINUOUS DAILY DOSE 28-DAY CYCLE
     Route: 048
     Dates: start: 20140820, end: 20140916
  3. METFORMIN HYDROCHLORIDE EXTENDED RELEASE [Concomitant]
     Active Substance: METFORMIN HYDROCHLORIDE
     Indication: DIABETES MELLITUS
     Dosage: UNK
     Route: 048
     Dates: start: 20140315
  4. AMLOPIN [Concomitant]
     Active Substance: AMLODIPINE BESYLATE
     Indication: HYPERTENSION
     Dosage: 10 MG, ONCE
     Route: 048
     Dates: start: 20140917, end: 20140917
  5. STATOR [Concomitant]
     Indication: CORONARY ARTERY DISEASE
     Dosage: UNK
     Dates: start: 20140715
  6. SUNITINIB MALATE [Suspect]
     Active Substance: SUNITINIB MALATE
     Indication: PANCREATIC NEUROENDOCRINE TUMOUR
     Dosage: 37.5 MG, CONTINUOUS DAILY DOSE 28-DAY CYCLE
     Route: 048
     Dates: start: 20140723, end: 20140815
  7. MENADIONE SODIUM BISULFITE [Concomitant]
     Active Substance: MENADIONE
     Indication: GINGIVAL BLEEDING
     Dosage: 10 MG, DAILY FOR 2 DAYS
     Route: 042
     Dates: start: 20140917, end: 20140917
  8. BENNET T [Concomitant]
     Indication: GINGIVAL BLEEDING
     Dosage: 250 MG, UNK
     Route: 048
     Dates: start: 20140914, end: 20140916
  9. TRANEMIC [Concomitant]
     Indication: GINGIVAL BLEEDING
     Dosage: 500 MG, UNK
     Route: 042
     Dates: start: 20140917, end: 20140917

REACTIONS (1)
  - Thrombocytopenia [Recovering/Resolving]

NARRATIVE: CASE EVENT DATE: 20140917
